FAERS Safety Report 24012365 (Version 1)
Quarter: 2024Q2

REPORT INFORMATION
  Report Type: Spontaneous
  Country: BR (occurrence: BR)
  Receive Date: 20240625
  Receipt Date: 20240625
  Transmission Date: 20240716
  Serious: Yes (Other)
  Sender: FDA-Public Use
  Company Number: BR-JNJFOC-20240651303

PATIENT
  Sex: Female

DRUGS (13)
  1. BOSENTAN [Suspect]
     Active Substance: BOSENTAN
     Indication: Product used for unknown indication
     Dosage: 3 TABLETS OF 200MCG
     Route: 048
  2. BOSENTAN [Suspect]
     Active Substance: BOSENTAN
     Route: 048
     Dates: start: 20240611
  3. SERTRALINE [Concomitant]
     Active Substance: SERTRALINE HYDROCHLORIDE
  4. SILDENAFIL [Concomitant]
     Active Substance: SILDENAFIL
     Dosage: 2 TABLETS IN 8 HOURS (INCREASED BY 1 ADDITIONAL TABLET, AT THE DOCTOR^S REQUEST)
  5. DAPAGLIFLOZIN [Concomitant]
     Active Substance: DAPAGLIFLOZIN
  6. ESOMEPRAZOLE MAGNESIUM [Concomitant]
     Active Substance: ESOMEPRAZOLE MAGNESIUM
  7. CLONAZEPAM [Concomitant]
     Active Substance: CLONAZEPAM
     Dosage: 6 DROPS PER DAY
  8. FUROSEMIDE [Concomitant]
     Active Substance: FUROSEMIDE
  9. EUTHYROX [Concomitant]
     Active Substance: LEVOTHYROXINE SODIUM
  10. METOPROLOL [Concomitant]
     Active Substance: METOPROLOL
  11. CARBAMAZEPINE [Concomitant]
     Active Substance: CARBAMAZEPINE
     Dosage: 1 TABLET IN THE MORNING
  12. ACETAMINOPHEN\ASPIRIN\CAFFEINE [Concomitant]
     Active Substance: ACETAMINOPHEN\ASPIRIN\CAFFEINE
     Dosage: 2 TABLETS AFTER LUNCH; 2 DAYS
  13. ACETAMINOPHEN\ASPIRIN\CAFFEINE [Concomitant]
     Active Substance: ACETAMINOPHEN\ASPIRIN\CAFFEINE

REACTIONS (10)
  - Thrombosis [Unknown]
  - Pain [Recovering/Resolving]
  - Diarrhoea [Unknown]
  - Abdominal pain upper [Unknown]
  - Joint stiffness [Unknown]
  - Varicose vein [Unknown]
  - Paraesthesia [Unknown]
  - Food craving [Unknown]
  - Pulmonary pain [Unknown]
  - Thyroid disorder [Unknown]
